FAERS Safety Report 6170237-2 (Version None)
Quarter: 2009Q2

REPORT INFORMATION
  Report Type: 
  Country: None (occurrence: None)
  Receive Date: 20090428
  Receipt Date: 20090415
  Transmission Date: 20091009
  Serious: Yes (Other)
  Sender: FDA-Public Use
  Company Number: PH-PFIZER INC-2009199892

PATIENT

DRUGS (1)
  1. DILANTIN [Suspect]
     Indication: STATUS EPILEPTICUS
     Route: 042

REACTIONS (2)
  - INJECTION SITE MOVEMENT IMPAIRMENT [None]
  - OEDEMA PERIPHERAL [None]
